FAERS Safety Report 24750366 (Version 2)
Quarter: 2025Q3

REPORT INFORMATION
  Report Type: Report from Study
  Country: US (occurrence: US)
  Receive Date: 20241218
  Receipt Date: 20250810
  Transmission Date: 20251021
  Serious: Yes (Other)
  Sender: ALEXION PHARMACEUTICALS
  Company Number: US-AstraZeneca-CH-00712528A

PATIENT
  Age: 76 Year
  Sex: Female
  Weight: 106.6 kg

DRUGS (44)
  1. FASENRA [Suspect]
     Active Substance: BENRALIZUMAB
     Indication: Asthma
     Dosage: 30 MILLIGRAM, Q8W
     Dates: start: 2014
  2. NEXIUM [Concomitant]
     Active Substance: ESOMEPRAZOLE MAGNESIUM
     Route: 065
  3. AUGMENTIN [Concomitant]
     Active Substance: AMOXICILLIN\CLAVULANATE POTASSIUM
     Route: 065
  4. DIPHENHYDRAMINE [Concomitant]
     Active Substance: DIPHENHYDRAMINE
     Route: 065
  5. EPINEPHRINE [Concomitant]
     Active Substance: EPINEPHRINE
  6. LIDOCAINE [Concomitant]
     Active Substance: LIDOCAINE
  7. SODIUM CHLORIDE [Concomitant]
     Active Substance: SODIUM CHLORIDE
     Route: 065
  8. HUMALOG [Concomitant]
     Active Substance: INSULIN LISPRO
     Route: 065
  9. ELIQUIS [Concomitant]
     Active Substance: APIXABAN
     Route: 065
  10. TOUJEO [Concomitant]
     Active Substance: INSULIN GLARGINE
     Route: 065
  11. FLECAINIDE ACETATE [Concomitant]
     Active Substance: FLECAINIDE ACETATE
     Route: 065
  12. FLUTICASONE [Concomitant]
     Active Substance: FLUTICASONE
     Route: 065
  13. FUROSEMIDE [Concomitant]
     Active Substance: FUROSEMIDE
     Route: 065
  14. PREDNISONE [Concomitant]
     Active Substance: PREDNISONE
  15. TRELEGY ELLIPTA [Concomitant]
     Active Substance: FLUTICASONE FUROATE\UMECLIDINIUM BROMIDE\VILANTEROL TRIFENATATE
     Route: 065
  16. DULOXETINE HYDROCHLORIDE [Concomitant]
     Active Substance: DULOXETINE HYDROCHLORIDE
     Route: 065
  17. FERROUS SULFATE [Concomitant]
     Active Substance: FERROUS SULFATE
  18. METOPROLOL SUCCINATE [Concomitant]
     Active Substance: METOPROLOL SUCCINATE
  19. ACETAMINOPHEN [Concomitant]
     Active Substance: ACETAMINOPHEN
  20. DULOXETINE [Concomitant]
     Active Substance: DULOXETINE
  21. BENADRYL [Concomitant]
     Active Substance: DIPHENHYDRAMINE HYDROCHLORIDE
  22. CYANOCOBALAMIN [Concomitant]
     Active Substance: CYANOCOBALAMIN
  23. DICLOFENAC SODIUM [Concomitant]
     Active Substance: DICLOFENAC SODIUM
  24. ASCORBIC ACID [Concomitant]
     Active Substance: ASCORBIC ACID
  25. MEMANTINE [Concomitant]
     Active Substance: MEMANTINE
  26. MAGNESIUM OXIDE [Concomitant]
     Active Substance: MAGNESIUM OXIDE
  27. DONEPEZIL HYDROCHLORIDE [Concomitant]
     Active Substance: DONEPEZIL HYDROCHLORIDE
  28. MELATONIN [Concomitant]
     Active Substance: MELATONIN
  29. CYANOCOBALAMIN\DEXPANTHENOL\NIACINAMIDE\PYRIDOXINE HYDROCHLORIDE\RIBOF [Concomitant]
     Active Substance: CYANOCOBALAMIN\DEXPANTHENOL\NIACINAMIDE\PYRIDOXINE HYDROCHLORIDE\RIBOFLAVIN 5^-PHOSPHATE SODIUM\THIA
  30. VITAMIN B12 [Concomitant]
     Active Substance: CYANOCOBALAMIN
  31. NYSTATIN [Concomitant]
     Active Substance: NYSTATIN
  32. ROSUVASTATIN [Concomitant]
     Active Substance: ROSUVASTATIN
  33. EPIPEN [Concomitant]
     Active Substance: EPINEPHRINE
  34. COENZYME Q10 [Concomitant]
     Active Substance: DIETARY SUPPLEMENT\UBIDECARENONE
  35. PROAIR DIGIHALER [Concomitant]
     Active Substance: ALBUTEROL SULFATE
  36. PROCHLORPERAZINE MALEATE [Concomitant]
     Active Substance: PROCHLORPERAZINE MALEATE
  37. AMMONIUM LACTATE [Concomitant]
     Active Substance: AMMONIUM LACTATE
  38. LOSARTAN POTASSIUM [Concomitant]
     Active Substance: LOSARTAN POTASSIUM
  39. METHENAMINE [Concomitant]
     Active Substance: METHENAMINE
  40. TRAZODONE HCL [Concomitant]
     Active Substance: TRAZODONE HYDROCHLORIDE
  41. ROPINIROLE HYDROCHLORIDE [Concomitant]
     Active Substance: ROPINIROLE HYDROCHLORIDE
  42. VITAMIN D2 [Concomitant]
     Active Substance: ERGOCALCIFEROL
  43. NARCAN [Concomitant]
     Active Substance: NALOXONE HYDROCHLORIDE
  44. GEMTESA [Concomitant]
     Active Substance: VIBEGRON

REACTIONS (2)
  - Urinary tract infection [Unknown]
  - Confusional state [Unknown]

NARRATIVE: CASE EVENT DATE: 20240906
